FAERS Safety Report 9719883 (Version 2)
Quarter: 2013Q4

REPORT INFORMATION
  Report Type: Spontaneous
  Country: GB (occurrence: GB)
  Receive Date: 20131128
  Receipt Date: 20131203
  Transmission Date: 20140711
  Serious: Yes (Death, Hospitalization)
  Sender: FDA-Public Use
  Company Number: GB-SA-2013SA122140

PATIENT
  Age: 75 Year
  Sex: Male

DRUGS (3)
  1. DANAZOL [Suspect]
     Indication: HEREDITARY ANGIOEDEMA
     Route: 065
  2. DANAZOL [Suspect]
     Indication: HEREDITARY ANGIOEDEMA
     Route: 065
  3. DANAZOL [Suspect]
     Indication: HEREDITARY ANGIOEDEMA
     Route: 065

REACTIONS (8)
  - Hepatocellular carcinoma [Fatal]
  - Alanine aminotransferase increased [Fatal]
  - Blood alkaline phosphatase increased [Fatal]
  - Hepatomegaly [Fatal]
  - Abdominal pain [Fatal]
  - Vomiting [Fatal]
  - Metastases to bone [Fatal]
  - Shock [Recovered/Resolved]
